FAERS Safety Report 4316134-6 (Version None)
Quarter: 2004Q1

REPORT INFORMATION
  Report Type: 
  Country: None (occurrence: None)
  Receive Date: 20040310
  Receipt Date: 20040225
  Transmission Date: 20041129
  Serious: Yes (Life-Threatening, Other)
  Sender: FDA-Public Use
  Company Number: 2000-BP-02112

PATIENT
  Age: 4 Day
  Sex: Male

DRUGS (8)
  1. VIRAMUNE [Suspect]
     Indication: PROPHYLAXIS AGAINST HIV INFECTION
     Dosage: (4MG/KG ONCE A WEEK) PO
     Route: 048
     Dates: start: 20000927
  2. VITAMIN K (PHYTOMENADIONE) (NR) [Concomitant]
  3. SOFRAMYCIN (FRAMYCETIN SULFATE) (SAA) [Concomitant]
  4. BCG (VACCINE (BCG VACCINE) (NR) [Concomitant]
  5. BETADINE ANTISEPTIC OINTMENT (POVIDONE-IODINE) (SAH) [Concomitant]
  6. FERROUS SULFATE (MATERNAL DOSE) (FERROUS SULFATE) (NR) [Concomitant]
  7. FOLIC ACID (MATERNAL DOSE) (FOLIC ACID) (NR) [Concomitant]
  8. ERYTHROMYCIN (MATERNAL DOSE) (ERYTHROMYCIN) (TA) [Concomitant]

REACTIONS (7)
  - ANAEMIA [None]
  - BASOPHIL PERCENTAGE INCREASED [None]
  - LYMPHOCYTE PERCENTAGE INCREASED [None]
  - MONOCYTE PERCENTAGE DECREASED [None]
  - MONOCYTE PERCENTAGE INCREASED [None]
  - NEUTROPENIA [None]
  - PLATELET COUNT INCREASED [None]
